FAERS Safety Report 15658453 (Version 1)
Quarter: 2018Q4

REPORT INFORMATION
  Report Type: Report from Study
  Country: US (occurrence: US)
  Receive Date: 20181126
  Receipt Date: 20181126
  Transmission Date: 20190205
  Serious: Yes (Other)
  Sender: FDA-Public Use
  Company Number: US-SAKK-2018SA172111AA

PATIENT
  Age: 12 Year
  Sex: Female

DRUGS (1)
  1. ALEMTUZUMAB [Suspect]
     Active Substance: ALEMTUZUMAB
     Dosage: UNK UNK, UNK
     Route: 041
     Dates: start: 2013

REACTIONS (12)
  - Cystitis haemorrhagic [Recovered/Resolved]
  - Corynebacterium bacteraemia [Recovered/Resolved]
  - Fungal disease carrier [Unknown]
  - Cytomegalovirus viraemia [Unknown]
  - Staphylococcal infection [Recovered/Resolved]
  - Clostridium difficile colitis [Recovered/Resolved]
  - Viral test positive [Recovered/Resolved]
  - Human herpesvirus 6 infection [Unknown]
  - Off label use [Unknown]
  - Influenza [Recovered/Resolved]
  - BK virus infection [Recovered/Resolved]
  - Adenovirus infection [Unknown]
